FAERS Safety Report 4774682-9 (Version None)
Quarter: 2005Q3

REPORT INFORMATION
  Report Type: 
  Country: None (occurrence: None)
  Receive Date: 20050921
  Receipt Date: 20050728
  Transmission Date: 20060218
  Serious: Yes (Hospitalization)
  Sender: FDA-Public Use
  Company Number: US-ROCHE-412406

PATIENT
  Age: 59 Year
  Sex: Female
  Weight: 69.9 kg

DRUGS (1)
  1. BONIVA [Suspect]
     Indication: OSTEOPOROSIS
     Route: 048
     Dates: start: 20050601, end: 20050720

REACTIONS (2)
  - APPENDICITIS PERFORATED [None]
  - DYSPEPSIA [None]
